FAERS Safety Report 9107809 (Version 2)
Quarter: 2013Q1

REPORT INFORMATION
  Report Type: Spontaneous
  Country: US (occurrence: US)
  Receive Date: 20130221
  Receipt Date: 20130312
  Transmission Date: 20140127
  Serious: Yes (Hospitalization)
  Sender: FDA-Public Use
  Company Number: US-BIOGENIDEC-2013BI016005

PATIENT
  Age: 52 Year
  Sex: Female

DRUGS (1)
  1. AVONEX [Suspect]
     Indication: MULTIPLE SCLEROSIS
     Route: 030
     Dates: start: 200901

REACTIONS (5)
  - Renal failure [Not Recovered/Not Resolved]
  - Urosepsis [Not Recovered/Not Resolved]
  - Pyelonephritis [Recovered/Resolved]
  - Diabetes mellitus inadequate control [Unknown]
  - Urinary retention [Unknown]
